FAERS Safety Report 19389784 (Version 8)
Quarter: 2023Q2

REPORT INFORMATION
  Report Type: Report from Study
  Country: US (occurrence: US)
  Receive Date: 20210608
  Receipt Date: 20230613
  Transmission Date: 20230721
  Serious: No
  Sender: FDA-Public Use
  Company Number: NVSC2021US128869

PATIENT
  Sex: Female

DRUGS (1)
  1. COSENTYX [Suspect]
     Active Substance: SECUKINUMAB
     Indication: Malaise
     Dosage: 150 MG
     Route: 065

REACTIONS (6)
  - Malaise [Unknown]
  - Tremor [Unknown]
  - Gait disturbance [Unknown]
  - Visual impairment [Unknown]
  - Psoriasis [Unknown]
  - Product use in unapproved indication [Unknown]
